FAERS Safety Report 11796183 (Version 1)
Quarter: 2015Q4

REPORT INFORMATION
  Report Type: Spontaneous
  Country: US (occurrence: None)
  Receive Date: 20151202
  Receipt Date: 20151202
  Transmission Date: 20160305
  Serious: Yes (Other)
  Sender: FDA-Public Use
  Company Number: None

PATIENT
  Age: 10 Day
  Sex: Male
  Weight: 1.8 kg

DRUGS (3)
  1. TPN [Suspect]
     Active Substance: AMINO ACIDS\DEXTROSE\ELECTROLYTES NOS\SOYBEAN OIL
  2. PRIMARY IV PUMP TUBING [Concomitant]
  3. ALARIS PCU UNIT [Concomitant]

REACTIONS (2)
  - Incorrect drug administration rate [None]
  - Device infusion issue [None]

NARRATIVE: CASE EVENT DATE: 20151119
